FAERS Safety Report 25273580 (Version 1)
Quarter: 2025Q2

REPORT INFORMATION
  Report Type: Spontaneous
  Country: US (occurrence: None)
  Receive Date: 20250505
  Receipt Date: 20250505
  Transmission Date: 20250717
  Serious: Yes (Hospitalization, Disabling)
  Sender: FDA-CTU
  Company Number: None

PATIENT
  Age: 44 Year
  Sex: Male
  Weight: 110.25 kg

DRUGS (7)
  1. SERTRALINE [Suspect]
     Active Substance: SERTRALINE HYDROCHLORIDE
     Indication: Fatigue
     Dosage: 1 CAPSULE(S) DAILY ORAL
     Route: 048
     Dates: start: 20220912, end: 20220918
  2. SERTRALINE [Suspect]
     Active Substance: SERTRALINE HYDROCHLORIDE
     Indication: Sleep disorder
  3. SERTRALINE [Suspect]
     Active Substance: SERTRALINE HYDROCHLORIDE
     Indication: Sleep disorder
  4. Current Zinc [Concomitant]
  5. MAGNESIUM [Concomitant]
     Active Substance: MAGNESIUM
  6. VITAMIN D [Concomitant]
     Active Substance: VITAMIN D NOS
  7. VITAMIN B COMPLEX [Concomitant]
     Active Substance: CYANOCOBALAMIN\DEXPANTHENOL\NIACINAMIDE\PYRIDOXINE HYDROCHLORIDE\RIBOFLAVIN 5^-PHOSPHATE SODIUM\THIA

REACTIONS (14)
  - Sleep apnoea syndrome [None]
  - Disturbance in attention [None]
  - Anger [None]
  - Emotional disorder [None]
  - Depression [None]
  - Loss of consciousness [None]
  - Memory impairment [None]
  - Fatigue [None]
  - Insomnia [None]
  - Anxiety [None]
  - Stress [None]
  - Tinnitus [None]
  - Amnesia [None]
  - Impaired work ability [None]

NARRATIVE: CASE EVENT DATE: 20220912
